FAERS Safety Report 25289784 (Version 1)
Quarter: 2025Q2

REPORT INFORMATION
  Report Type: Spontaneous
  Country: BE (occurrence: BE)
  Receive Date: 20250509
  Receipt Date: 20250509
  Transmission Date: 20250716
  Serious: Yes (Death, Other)
  Sender: DAIICHI
  Company Number: BE-DSJP-DS-2025-139756-BE

PATIENT
  Age: 77 Year
  Sex: Female

DRUGS (1)
  1. TRASTUZUMAB DERUXTECAN [Suspect]
     Active Substance: TRASTUZUMAB DERUXTECAN
     Indication: Breast cancer
     Route: 042
     Dates: start: 20240807, end: 20240830

REACTIONS (4)
  - Interstitial lung disease [Fatal]
  - Cardiac failure [Unknown]
  - Arrhythmia [Unknown]
  - COVID-19 [Unknown]

NARRATIVE: CASE EVENT DATE: 20240927
